FAERS Safety Report 17340642 (Version 1)
Quarter: 2020Q1

REPORT INFORMATION
  Report Type: Spontaneous
  Country: US (occurrence: US)
  Receive Date: 20200129
  Receipt Date: 20200129
  Transmission Date: 20200409
  Serious: No
  Sender: FDA-Public Use
  Company Number: US-ALLERGAN-1915165US

PATIENT
  Age: 62 Year
  Sex: Female

DRUGS (2)
  1. BOTOX COSMETIC [Suspect]
     Active Substance: ONABOTULINUMTOXINA
     Indication: SKIN WRINKLING
     Dosage: ACTUAL: 5 UNITS IN FIVE SITES
     Route: 030
     Dates: start: 20190401, end: 20190401
  2. OTC ANTIHISTAMINE [Concomitant]
     Dosage: UNK

REACTIONS (3)
  - Product preparation error [Unknown]
  - Off label use [Unknown]
  - Therapeutic response decreased [Unknown]

NARRATIVE: CASE EVENT DATE: 20190401
